FAERS Safety Report 17598062 (Version 5)
Quarter: 2020Q3

REPORT INFORMATION
  Report Type: Spontaneous
  Country: US (occurrence: US)
  Receive Date: 20200330
  Receipt Date: 20200914
  Transmission Date: 20201102
  Serious: No
  Sender: FDA-Public Use
  Company Number: US-PFIZER INC-2020131925

PATIENT
  Age: 37 Year
  Sex: Female

DRUGS (2)
  1. XELJANZ [Suspect]
     Active Substance: TOFACITINIB CITRATE
     Indication: COLITIS ULCERATIVE
     Dosage: 10 MG, TWICE DAILY (BID)
     Route: 048
     Dates: start: 20200221
  2. XELJANZ [Suspect]
     Active Substance: TOFACITINIB CITRATE
     Dosage: 5 MG, BID
     Route: 048
     Dates: start: 202008

REACTIONS (8)
  - Headache [Recovered/Resolved]
  - Product dose omission issue [Unknown]
  - Cold sweat [Recovered/Resolved]
  - Urinary tract infection [Recovered/Resolved]
  - Frequent bowel movements [Unknown]
  - Hot flush [Recovered/Resolved]
  - Malaise [Unknown]
  - Stress [Unknown]

NARRATIVE: CASE EVENT DATE: 2020
